FAERS Safety Report 4721986-1 (Version None)
Quarter: 2005Q3

REPORT INFORMATION
  Report Type: 
  Country: None (occurrence: None)
  Receive Date: 20050722
  Receipt Date: 20050712
  Transmission Date: 20060218
  Serious: Yes (Other)
  Sender: FDA-Public Use
  Company Number: PHBS2005AT10067

PATIENT
  Age: 54 Year
  Sex: Female

DRUGS (11)
  1. IMATINIB [Suspect]
     Indication: CHRONIC MYELOID LEUKAEMIA
     Dosage: 400 MG/D
     Route: 065
  2. IMATINIB [Suspect]
     Dosage: 300 MG/D
     Route: 065
  3. IMATINIB [Suspect]
     Dosage: 200 MG/D
     Route: 065
  4. IMATINIB [Suspect]
     Dosage: 400 MG/D
     Route: 065
  5. IMATINIB [Suspect]
     Dosage: 600 MG/D
     Route: 065
  6. CYCLOSPORINE [Suspect]
     Indication: STEM CELL TRANSPLANT
  7. MYCOPHENOLATE MOFETIL [Concomitant]
     Indication: STEM CELL TRANSPLANT
  8. ATGAM [Concomitant]
     Indication: STEM CELL TRANSPLANT
  9. DEXAMETHASONE [Concomitant]
  10. FLUDARABINE PHOSPHATE [Concomitant]
     Dosage: 150 MG/M2
  11. IRRADIATION [Concomitant]

REACTIONS (3)
  - MALIGNANT NEOPLASM PROGRESSION [None]
  - NEUTROPENIA [None]
  - STEM CELL TRANSPLANT [None]
